FAERS Safety Report 20669495 (Version 1)
Quarter: 2022Q2

REPORT INFORMATION
  Report Type: Spontaneous
  Country: US (occurrence: US)
  Receive Date: 20220404
  Receipt Date: 20220404
  Transmission Date: 20220721
  Serious: No
  Sender: FDA-Public Use
  Company Number: US-009507513-2203USA008137

PATIENT
  Age: 75 Year
  Sex: Male

DRUGS (2)
  1. TEMODAR [Suspect]
     Active Substance: TEMOZOLOMIDE
     Dosage: UNK
  2. OLAPARIB [Suspect]
     Active Substance: OLAPARIB

REACTIONS (2)
  - Constipation [Unknown]
  - Fatigue [Unknown]
